FAERS Safety Report 21541690 (Version 9)
Quarter: 2024Q1

REPORT INFORMATION
  Report Type: Report from Study
  Country: US (occurrence: US)
  Receive Date: 20221102
  Receipt Date: 20240325
  Transmission Date: 20240410
  Serious: Yes (Hospitalization, Other)
  Sender: FDA-Public Use
  Company Number: US-TAKEDA-US201720423

PATIENT
  Age: 10 Year
  Sex: Male

DRUGS (12)
  1. IDURSULFASE [Suspect]
     Active Substance: IDURSULFASE
     Indication: Mucopolysaccharidosis II
     Dosage: 24 MILLIGRAM, 1/WEEK
     Route: 042
     Dates: start: 20130207
  2. IDURSULFASE [Suspect]
     Active Substance: IDURSULFASE
     Indication: Status epilepticus
     Dosage: 24 MILLIGRAM, 1/WEEK
     Route: 042
     Dates: start: 20160928
  3. IDURSULFASE [Suspect]
     Active Substance: IDURSULFASE
     Indication: Lennox-Gastaut syndrome
     Dosage: 18 MILLIGRAM, 1/WEEK
     Route: 042
     Dates: start: 20160929
  4. IDURSULFASE [Suspect]
     Active Substance: IDURSULFASE
     Dosage: 24 MILLIGRAM, 1/WEEK
     Route: 042
     Dates: start: 20160930
  5. IDURSULFASE [Suspect]
     Active Substance: IDURSULFASE
     Dosage: 24 MILLIGRAM, 1/WEEK
     Route: 042
     Dates: start: 201609
  6. IDURSULFASE [Suspect]
     Active Substance: IDURSULFASE
     Dosage: 24 MILLIGRAM, 1/WEEK
     Route: 042
     Dates: start: 201610
  7. IDURSULFASE [Suspect]
     Active Substance: IDURSULFASE
     Dosage: 24 MILLIGRAM, 1/WEEK
     Route: 042
     Dates: start: 20161102
  8. IDURSULFASE [Suspect]
     Active Substance: IDURSULFASE
     Dosage: 24 MILLIGRAM, 1/WEEK
     Route: 042
     Dates: start: 201611
  9. IDURSULFASE [Suspect]
     Active Substance: IDURSULFASE
     Dosage: 24 MILLIGRAM, 1/WEEK
     Route: 042
     Dates: start: 20220128
  10. EPIDIOLEX [Suspect]
     Active Substance: CANNABIDIOL
     Indication: Lennox-Gastaut syndrome
     Dosage: UNK
     Route: 065
  11. EPIDIOLEX [Suspect]
     Active Substance: CANNABIDIOL
     Indication: Status epilepticus
  12. EPINEPHRINE [Concomitant]
     Active Substance: EPINEPHRINE
     Dosage: UNK
     Route: 065

REACTIONS (17)
  - Acute respiratory distress syndrome [Unknown]
  - Psychomotor hyperactivity [Unknown]
  - Agitation [Unknown]
  - COVID-19 [Unknown]
  - Upper respiratory tract infection [Unknown]
  - Seizure [Unknown]
  - Pneumonia [Unknown]
  - Dyspnoea [Unknown]
  - Respiratory distress [Unknown]
  - Device infusion issue [Unknown]
  - Illness [Unknown]
  - Needle issue [Unknown]
  - Weight increased [Unknown]
  - Weight decreased [Unknown]
  - Complication associated with device [Unknown]
  - Product dose omission issue [Unknown]
  - Product use in unapproved indication [Unknown]

NARRATIVE: CASE EVENT DATE: 20161102
